FAERS Safety Report 18435901 (Version 2)
Quarter: 2020Q4

REPORT INFORMATION
  Report Type: Report from Study
  Country: None (occurrence: CH)
  Receive Date: 20201028
  Receipt Date: 20201030
  Transmission Date: 20210114
  Serious: Yes (Death, Hospitalization)
  Sender: FDA-Public Use
  Company Number: CH-ABBVIE-20K-151-3611332-00

PATIENT
  Age: 64 Year
  Sex: Female

DRUGS (3)
  1. DUODOPA [Suspect]
     Active Substance: CARBIDOPA\LEVODOPA
     Dosage: MD: 3 ML, CRD: 2.6 ML/H, CRN: 2.4 ML/H, ED: 1 ML, 1 CASSETTE PER DAY,24 H THERAPY
     Route: 050
     Dates: start: 20200828
  2. DUODOPA [Suspect]
     Active Substance: CARBIDOPA\LEVODOPA
     Indication: PARKINSON^S DISEASE
     Dosage: 1 CASSETTE PER DAY/20 MG/ML 5 MG/ML
     Route: 050
     Dates: start: 20200115, end: 20200612
  3. DUODOPA [Suspect]
     Active Substance: CARBIDOPA\LEVODOPA
     Dosage: MD: 3 ML, CRD: 3.2 ML/H, CRN: 2.4 ML/H, ED: 2 ML, 24 H THERAPY?20 MG/ML 5 MG/ML
     Route: 050
     Dates: start: 20200612, end: 20200828

REACTIONS (4)
  - Mobility decreased [Unknown]
  - Pulmonary embolism [Fatal]
  - Confusional state [Unknown]
  - Hallucination [Unknown]

NARRATIVE: CASE EVENT DATE: 2020
